FAERS Safety Report 23945651 (Version 1)
Quarter: 2024Q2

REPORT INFORMATION
  Report Type: Spontaneous
  Country: US (occurrence: US)
  Receive Date: 20240606
  Receipt Date: 20240606
  Transmission Date: 20240716
  Serious: No
  Sender: FDA-Public Use
  Company Number: US-ALVOGEN-2024094679

PATIENT
  Sex: Female

DRUGS (3)
  1. BUPRENORPHINE [Suspect]
     Active Substance: BUPRENORPHINE
     Indication: Pain management
     Route: 062
  2. BUPRENORPHINE [Suspect]
     Active Substance: BUPRENORPHINE
     Indication: Pain management
     Dosage: EXP: 31-AUG-2024?S/N: 114562886687 ?GTIN: 00347781419042
     Route: 062
  3. BUPRENORPHINE [Suspect]
     Active Substance: BUPRENORPHINE
     Indication: Pain management
     Route: 062

REACTIONS (5)
  - Pain [Unknown]
  - Device malfunction [Unknown]
  - Device adhesion issue [Unknown]
  - Product quality issue [Unknown]
  - Intentional product use issue [Unknown]

NARRATIVE: CASE EVENT DATE: 20240101
